FAERS Safety Report 9843777 (Version 1)
Quarter: 2013Q4

REPORT INFORMATION
  Report Type: Spontaneous
  Country: US (occurrence: None)
  Receive Date: 20131223
  Receipt Date: 20131223
  Transmission Date: 20140711
  Serious: Yes (Other)
  Sender: FDA-Public Use
  Company Number: 1000051319

PATIENT
  Sex: Female

DRUGS (6)
  1. LINZESS (LINACLOTIDE) (290 MICROGRAM, CAPSULES) [Suspect]
     Indication: IRRITABLE BOWEL SYNDROME
     Route: 048
     Dates: start: 20131106, end: 20131113
  2. VICODIN (VICODIN) (VICODIN) [Concomitant]
  3. TYLENOL (ACETAMINOPHEN) (ACETAMINOPHEN) [Concomitant]
  4. HYDROCHLOROTHIAZIDE (HYDROCHLOROTHIAZIDE) (HYDROCHLOROTHIAZIDE) [Concomitant]
  5. SYNTHROID (LEVOTHYROXINE SODIUM) (LEVOTHYROXINE SODIUM) [Concomitant]
  6. VERAPAMIL (VERAPAMIL) (VERAPAMIL) [Concomitant]

REACTIONS (4)
  - Diarrhoea [None]
  - Abdominal discomfort [None]
  - Dysgeusia [None]
  - Vomiting [None]
